FAERS Safety Report 10378268 (Version 2)
Quarter: 2014Q4

REPORT INFORMATION
  Report Type: Spontaneous
  Country: US (occurrence: US)
  Receive Date: 20140812
  Receipt Date: 20141027
  Transmission Date: 20150528
  Serious: No
  Sender: FDA-Public Use
  Company Number: US-PFIZER INC-2014220266

PATIENT
  Age: 71 Year
  Sex: Female

DRUGS (1)
  1. XALKORI [Suspect]
     Active Substance: CRIZOTINIB
     Indication: TRACHEAL CANCER
     Dosage: 250 MG, UNK
     Dates: start: 20120208

REACTIONS (3)
  - Product use issue [Unknown]
  - Photophobia [Unknown]
  - Dry eye [Unknown]
